FAERS Safety Report 8408322-4 (Version None)
Quarter: 2012Q2

REPORT INFORMATION
  Report Type: 
  Country: None (occurrence: None)
  Receive Date: 20120604
  Receipt Date: 20120518
  Transmission Date: 20120825
  Serious: No
  Sender: FDA-Public Use
  Company Number: US-BAYER-2012-052834

PATIENT

DRUGS (4)
  1. IBUPROFEN (ADVIL) [Concomitant]
  2. PAMPRIN TAB [Concomitant]
  3. ALEVE (CAPLET) [Suspect]
     Indication: PAIN
  4. IBUPROFEN [Concomitant]

REACTIONS (1)
  - PAIN [None]
